FAERS Safety Report 7270855-4 (Version None)
Quarter: 2011Q1

REPORT INFORMATION
  Report Type: 
  Country: None (occurrence: None)
  Receive Date: 20110202
  Receipt Date: 20110124
  Transmission Date: 20110831
  Serious: No
  Sender: FDA-Public Use
  Company Number: US-BAYER-2011-008795

PATIENT
  Sex: Male
  Weight: 83.9 kg

DRUGS (4)
  1. ULTRAVIST 150 [Suspect]
     Indication: COMPUTERISED TOMOGRAM ABDOMEN
     Dosage: 122 ML, ONCE
     Route: 042
     Dates: start: 20110124, end: 20110124
  2. HYDROCHLOROTHIAZIDE [Concomitant]
  3. AMLODIPINE [Concomitant]
  4. UNCODEABLE ^UNKNOWN MANUFACTURER^ [Concomitant]
     Indication: COMPUTERISED TOMOGRAM ABDOMEN
     Dosage: UNK
     Route: 048
     Dates: start: 20110124, end: 20110124

REACTIONS (2)
  - VOMITING [None]
  - NAUSEA [None]
